FAERS Safety Report 10154765 (Version 2)
Quarter: 2014Q2

REPORT INFORMATION
  Report Type: Spontaneous
  Country: US (occurrence: US)
  Receive Date: 20140506
  Receipt Date: 20140626
  Transmission Date: 20141212
  Serious: No
  Sender: FDA-Public Use
  Company Number: US-009507513-1405USA000124

PATIENT
  Age: 68 Year
  Sex: Female

DRUGS (9)
  1. HYZAAR [Suspect]
     Indication: HYPERTENSION
     Dosage: 1 DF, QD
     Route: 048
     Dates: start: 19970410, end: 20110720
  2. ERGOCALCIFEROL [Concomitant]
     Dosage: 800 UNITS 1 CAPSULE ONCE A DAY
     Dates: end: 201107
  3. ERGOCALCIFEROL [Concomitant]
     Dosage: 1000UNITS ONE CAPSULE ONCE A DAY
     Dates: start: 201107
  4. CLARINEX (DESLORATADINE) [Concomitant]
     Dosage: 5 MG, 1 TABLET PRN
  5. DETROL LA [Concomitant]
     Indication: HYPERTONIC BLADDER
     Dosage: 1 DF, 1 CAPSULE ONCE A DAY.
     Route: 048
  6. CRESTOR [Concomitant]
     Indication: HYPERLIPIDAEMIA
     Dosage: 10 MG, 1 TABLET ONCE A DAY
     Route: 048
  7. PREDNISONE [Concomitant]
     Dosage: 1 DF, QAM
  8. XANAX [Concomitant]
     Dosage: 1 DF, BID
  9. CELEXA [Concomitant]
     Dosage: 1 TABLET+1/2 TABLET ONCE A DAY

REACTIONS (6)
  - Blood pressure increased [Recovered/Resolved]
  - Headache [Recovered/Resolved]
  - Lumbar spinal stenosis [Unknown]
  - Ligament sprain [Unknown]
  - Joint swelling [Recovering/Resolving]
  - Peripheral swelling [Recovering/Resolving]
